FAERS Safety Report 13603425 (Version 2)
Quarter: 2021Q4

REPORT INFORMATION
  Report Type: Report from Study
  Country: US (occurrence: US)
  Receive Date: 20170601
  Receipt Date: 20211110
  Transmission Date: 20220303
  Serious: Yes (Other)
  Sender: FDA-Public Use
  Company Number: US-OTSUKA-2017_003651

PATIENT
  Age: 76 Year
  Sex: Female
  Weight: 82.5 kg

DRUGS (1)
  1. TOLVAPTAN [Suspect]
     Active Substance: TOLVAPTAN
     Indication: Electrolyte imbalance
     Dosage: 15 MG, QD
     Route: 048
     Dates: start: 20160901

REACTIONS (5)
  - Mental impairment [Unknown]
  - Depression [Recovering/Resolving]
  - Constipation [Not Recovered/Not Resolved]
  - Incorrect product administration duration [Unknown]
  - Product use in unapproved indication [Unknown]

NARRATIVE: CASE EVENT DATE: 20160901
